FAERS Safety Report 7950347-7 (Version None)
Quarter: 2011Q4

REPORT INFORMATION
  Report Type: 
  Country: None (occurrence: None)
  Receive Date: 20111130
  Receipt Date: 20111123
  Transmission Date: 20120403
  Serious: Yes (Other)
  Sender: FDA-Public Use
  Company Number: CA-ASTRAZENECA-2011SE71517

PATIENT
  Sex: Male

DRUGS (2)
  1. SYMBICORT [Suspect]
     Dosage: 200MCG UNKNOWN
     Route: 055
  2. CLARITHROMYCIN [Interacting]
     Route: 065

REACTIONS (1)
  - POTENTIATING DRUG INTERACTION [None]
